FAERS Safety Report 5135166-1 (Version None)
Quarter: 2006Q4

REPORT INFORMATION
  Report Type: 
  Country: None (occurrence: None)
  Receive Date: 20061026
  Receipt Date: 20061016
  Transmission Date: 20070319
  Serious: Yes (Hospitalization, Other)
  Sender: FDA-Public Use
  Company Number: US-JNJFOC-20060806536

PATIENT
  Sex: Female
  Weight: 108.86 kg

DRUGS (6)
  1. REMICADE [Suspect]
     Route: 042
  2. REMICADE [Suspect]
     Route: 042
  3. REMICADE [Suspect]
     Indication: RHEUMATOID ARTHRITIS
     Route: 042
  4. DAYPRO [Concomitant]
  5. METHOTREXATE SODIUM [Concomitant]
  6. ATENOLOL [Concomitant]

REACTIONS (2)
  - INTESTINAL OPERATION [None]
  - WOUND [None]
